FAERS Safety Report 5127633-1 (Version None)
Quarter: 2006Q4

REPORT INFORMATION
  Report Type: 
  Country: None (occurrence: None)
  Receive Date: 20061016
  Receipt Date: 20060620
  Transmission Date: 20070319
  Serious: Yes (Death)
  Sender: FDA-Public Use
  Company Number: 2006CG01090

PATIENT
  Sex: Male

DRUGS (8)
  1. ZOMIGORO [Suspect]
     Route: 048
  2. PROPRANOLOL [Suspect]
  3. CLOMIPRAMINE HCL [Suspect]
  4. ZOLOFT [Suspect]
  5. RIVOTRIL [Suspect]
  6. RISPERDAL [Suspect]
  7. PRAZINIL [Suspect]
  8. YOHIMBINE [Suspect]

REACTIONS (1)
  - ROAD TRAFFIC ACCIDENT [None]
